FAERS Safety Report 15246313 (Version 1)
Quarter: 2018Q4

REPORT INFORMATION
  Report Type: Spontaneous
  Country: GR (occurrence: GR)
  Receive Date: 20180806
  Receipt Date: 20180806
  Transmission Date: 20190204
  Serious: Yes (Hospitalization)
  Sender: FDA-Public Use
  Company Number: GR-009507513-1808GRC001832

PATIENT
  Age: 76 Year
  Sex: Male

DRUGS (8)
  1. ZYLORIC 100 [Suspect]
     Active Substance: ALLOPURINOL
  2. LOBIVON [Suspect]
     Active Substance: NEBIVOLOL HYDROCHLORIDE
  3. SEVIKAR [Suspect]
     Active Substance: AMLODIPINE BESYLATE\OLMESARTAN MEDOXOMIL
  4. CRESTOR [Suspect]
     Active Substance: ROSUVASTATIN CALCIUM
  5. EZETROL [Suspect]
     Active Substance: EZETIMIBE
  6. PRADAXA [Suspect]
     Active Substance: DABIGATRAN ETEXILATE MESYLATE
  7. TORMIS [Suspect]
     Active Substance: TORSEMIDE
  8. TUPAST [Suspect]
     Active Substance: RANITIDINE

REACTIONS (1)
  - Hyponatraemia [Recovered/Resolved]
